FAERS Safety Report 8466170-3 (Version None)
Quarter: 2012Q2

REPORT INFORMATION
  Report Type: 
  Country: None (occurrence: None)
  Receive Date: 20120626
  Receipt Date: 20120620
  Transmission Date: 20120825
  Serious: Yes (Other)
  Sender: FDA-Public Use
  Company Number: US-BAYER-2012-061312

PATIENT
  Sex: Female

DRUGS (1)
  1. MIRENA [Suspect]
     Indication: MENSTRUAL CYCLE MANAGEMENT
     Dosage: 20 ?G/D, CONT
     Route: 015
     Dates: start: 20110708, end: 20120613

REACTIONS (3)
  - PAIN [None]
  - DEVICE DISLOCATION [None]
  - VAGINAL HAEMORRHAGE [None]
